FAERS Safety Report 11311128 (Version 1)
Quarter: 2015Q3

REPORT INFORMATION
  Report Type: Spontaneous
  Country: JP (occurrence: JP)
  Receive Date: 20150727
  Receipt Date: 20150727
  Transmission Date: 20151125
  Serious: Yes (Death)
  Sender: FDA-Public Use
  Company Number: JP-ROCHE-1564771

PATIENT
  Age: 53 Year
  Sex: Female
  Weight: 55 kg

DRUGS (2)
  1. PACLITAXEL. [Concomitant]
     Active Substance: PACLITAXEL
     Indication: OVARIAN CANCER RECURRENT
     Dosage: COMPLETED CYCLE TREAMENT NUMBER 1
     Route: 041
     Dates: start: 20150326, end: 20150413
  2. AVASTIN [Suspect]
     Active Substance: BEVACIZUMAB
     Indication: OVARIAN CANCER
     Dosage: COMPLETED TREATMENT CYCLE NUMBER: 1
     Route: 041
     Dates: start: 20150326, end: 20150413

REACTIONS (2)
  - Gastrointestinal perforation [Fatal]
  - Ovarian cancer metastatic [Fatal]

NARRATIVE: CASE EVENT DATE: 20150326
